FAERS Safety Report 14872051 (Version 1)
Quarter: 2018Q2

REPORT INFORMATION
  Report Type: Spontaneous
  Country: FR (occurrence: FR)
  Receive Date: 20180509
  Receipt Date: 20180509
  Transmission Date: 20180711
  Serious: Yes (Hospitalization)
  Sender: FDA-Public Use
  Company Number: FR-ROCHE-2081150

PATIENT
  Age: 2 Year
  Sex: Male

DRUGS (37)
  1. ETANERCEPT [Suspect]
     Active Substance: ETANERCEPT
     Indication: VOMITING
     Route: 065
  2. ETANERCEPT [Suspect]
     Active Substance: ETANERCEPT
     Indication: GRAFT VERSUS HOST DISEASE IN GASTROINTESTINAL TRACT
  3. SIROLIMUS. [Suspect]
     Active Substance: SIROLIMUS
     Indication: DIARRHOEA
     Route: 065
  4. CELLCEPT [Suspect]
     Active Substance: MYCOPHENOLATE MOFETIL\MYCOPHENOLATE MOFETIL HYDROCHLORIDE
     Indication: ABDOMINAL PAIN
  5. CELLCEPT [Suspect]
     Active Substance: MYCOPHENOLATE MOFETIL\MYCOPHENOLATE MOFETIL HYDROCHLORIDE
     Indication: ACUTE GRAFT VERSUS HOST DISEASE
  6. CELLCEPT [Suspect]
     Active Substance: MYCOPHENOLATE MOFETIL\MYCOPHENOLATE MOFETIL HYDROCHLORIDE
     Indication: GRAFT VERSUS HOST DISEASE IN GASTROINTESTINAL TRACT
  7. INFLIXIMAB [Suspect]
     Active Substance: INFLIXIMAB
     Indication: ABDOMINAL PAIN
  8. INFLIXIMAB [Suspect]
     Active Substance: INFLIXIMAB
     Indication: VOMITING
  9. SIROLIMUS. [Suspect]
     Active Substance: SIROLIMUS
     Indication: VOMITING
  10. AZATHIOPRINE. [Suspect]
     Active Substance: AZATHIOPRINE
     Indication: GRAFT VERSUS HOST DISEASE IN GASTROINTESTINAL TRACT
  11. TACROLIMUS. [Suspect]
     Active Substance: TACROLIMUS
     Indication: GRAFT VERSUS HOST DISEASE IN GASTROINTESTINAL TRACT
  12. ETANERCEPT [Suspect]
     Active Substance: ETANERCEPT
     Indication: DIARRHOEA
  13. INOLIMOMAB [Suspect]
     Active Substance: INOLIMOMAB
     Indication: GRAFT VERSUS HOST DISEASE IN GASTROINTESTINAL TRACT
     Route: 065
  14. INOLIMOMAB [Suspect]
     Active Substance: INOLIMOMAB
     Indication: VOMITING
  15. AZATHIOPRINE. [Suspect]
     Active Substance: AZATHIOPRINE
     Indication: DIARRHOEA
     Route: 065
  16. CELLCEPT [Suspect]
     Active Substance: MYCOPHENOLATE MOFETIL\MYCOPHENOLATE MOFETIL HYDROCHLORIDE
     Indication: DIARRHOEA
     Route: 065
  17. CELLCEPT [Suspect]
     Active Substance: MYCOPHENOLATE MOFETIL\MYCOPHENOLATE MOFETIL HYDROCHLORIDE
     Indication: VOMITING
  18. TACROLIMUS. [Suspect]
     Active Substance: TACROLIMUS
     Indication: VOMITING
  19. TACROLIMUS. [Suspect]
     Active Substance: TACROLIMUS
     Indication: ABDOMINAL PAIN
  20. TACROLIMUS. [Suspect]
     Active Substance: TACROLIMUS
     Indication: DIARRHOEA
  21. ETANERCEPT [Suspect]
     Active Substance: ETANERCEPT
     Indication: ACUTE GRAFT VERSUS HOST DISEASE
  22. ETANERCEPT [Suspect]
     Active Substance: ETANERCEPT
     Indication: ABDOMINAL PAIN
  23. INOLIMOMAB [Suspect]
     Active Substance: INOLIMOMAB
     Indication: DIARRHOEA
  24. SIROLIMUS. [Suspect]
     Active Substance: SIROLIMUS
     Indication: ACUTE GRAFT VERSUS HOST DISEASE
  25. SIROLIMUS. [Suspect]
     Active Substance: SIROLIMUS
     Indication: GRAFT VERSUS HOST DISEASE IN GASTROINTESTINAL TRACT
  26. AZATHIOPRINE. [Suspect]
     Active Substance: AZATHIOPRINE
     Indication: ACUTE GRAFT VERSUS HOST DISEASE
  27. INOLIMOMAB [Suspect]
     Active Substance: INOLIMOMAB
     Indication: ACUTE GRAFT VERSUS HOST DISEASE
  28. INFLIXIMAB [Suspect]
     Active Substance: INFLIXIMAB
     Indication: DIARRHOEA
  29. AZATHIOPRINE. [Suspect]
     Active Substance: AZATHIOPRINE
     Indication: ABDOMINAL PAIN
  30. AZATHIOPRINE. [Suspect]
     Active Substance: AZATHIOPRINE
     Indication: VOMITING
  31. CYCLOSPORINE. [Concomitant]
     Active Substance: CYCLOSPORINE
     Indication: GRAFT VERSUS HOST DISEASE IN GASTROINTESTINAL TRACT
     Route: 065
  32. INOLIMOMAB [Suspect]
     Active Substance: INOLIMOMAB
     Indication: ABDOMINAL PAIN
  33. TACROLIMUS. [Suspect]
     Active Substance: TACROLIMUS
     Indication: ACUTE GRAFT VERSUS HOST DISEASE
     Route: 065
  34. INFLIXIMAB [Suspect]
     Active Substance: INFLIXIMAB
     Indication: ACUTE GRAFT VERSUS HOST DISEASE
     Route: 065
  35. INFLIXIMAB [Suspect]
     Active Substance: INFLIXIMAB
     Indication: GRAFT VERSUS HOST DISEASE IN GASTROINTESTINAL TRACT
  36. SIROLIMUS. [Suspect]
     Active Substance: SIROLIMUS
     Indication: ABDOMINAL PAIN
  37. METHOTREXATE. [Concomitant]
     Active Substance: METHOTREXATE
     Indication: GRAFT VERSUS HOST DISEASE IN GASTROINTESTINAL TRACT
     Route: 065

REACTIONS (2)
  - Chronic graft versus host disease in intestine [Recovered/Resolved]
  - Drug ineffective [Unknown]
